FAERS Safety Report 24443997 (Version 2)
Quarter: 2024Q4

REPORT INFORMATION
  Report Type: Report from Study
  Country: ZA (occurrence: ZA)
  Receive Date: 20241016
  Receipt Date: 20241017
  Transmission Date: 20250115
  Serious: No
  Sender: ROCHE
  Company Number: ZA-ROCHE-2685565

PATIENT
  Age: 46 Year
  Sex: Female

DRUGS (6)
  1. RITUXIMAB [Suspect]
     Active Substance: RITUXIMAB
     Indication: Rheumatoid arthritis
     Dosage: INFUSED ON DAY 1 AND DAY 15?REPEAT 6MONTHS LATER
     Route: 041
     Dates: start: 20200311
  2. RITUXIMAB [Suspect]
     Active Substance: RITUXIMAB
     Route: 041
  3. RITUXIMAB [Suspect]
     Active Substance: RITUXIMAB
     Route: 041
     Dates: start: 20220610
  4. PREDNISONE [Concomitant]
     Active Substance: PREDNISONE
     Dosage: 5-10 MG,
     Dates: start: 20070911
  5. METHOTREXATE [Concomitant]
     Active Substance: METHOTREXATE
     Dates: start: 20070212, end: 20140328
  6. METHOTREXATE [Concomitant]
     Active Substance: METHOTREXATE
     Dates: start: 201801

REACTIONS (6)
  - Platelet count increased [Unknown]
  - C-reactive protein increased [Unknown]
  - Investigation abnormal [Unknown]
  - Disability assessment scale score increased [Unknown]
  - C-reactive protein increased [Unknown]
  - Haemoglobin increased [Unknown]

NARRATIVE: CASE EVENT DATE: 20211020
